FAERS Safety Report 14305551 (Version 1)
Quarter: 2017Q4

REPORT INFORMATION
  Report Type: Spontaneous
  Country: JP (occurrence: JP)
  Receive Date: 20171219
  Receipt Date: 20171219
  Transmission Date: 20180321
  Serious: Yes (Hospitalization)
  Sender: FDA-Public Use
  Company Number: JP-OTSUKA-JP-2014-15286

PATIENT
  Age: 60 Year
  Sex: Male

DRUGS (5)
  1. NITRAZEPAM [Concomitant]
     Active Substance: NITRAZEPAM
     Indication: PRODUCT USED FOR UNKNOWN INDICATION
     Dosage: UNK
     Route: 065
     Dates: start: 20110425, end: 20140511
  2. ABILIFY [Suspect]
     Active Substance: ARIPIPRAZOLE
     Indication: SCHIZOPHRENIA
     Dosage: 6 MG, TID
     Route: 048
     Dates: end: 20130731
  3. ABILIFY [Suspect]
     Active Substance: ARIPIPRAZOLE
     Dosage: 6 MG, UNK
     Route: 048
     Dates: start: 20130801, end: 20140511
  4. DEPAS [Concomitant]
     Active Substance: ETIZOLAM
     Indication: PRODUCT USED FOR UNKNOWN INDICATION
     Dosage: 1 MG, QD
     Route: 048
     Dates: start: 20110425, end: 20140511
  5. EVAMYL [Concomitant]
     Active Substance: LORMETAZEPAM
     Indication: PRODUCT USED FOR UNKNOWN INDICATION
     Dosage: 1 MG, QD
     Route: 048
     Dates: start: 20110425, end: 20140511

REACTIONS (8)
  - Glucose tolerance impaired [Recovering/Resolving]
  - Agitation [Unknown]
  - Hyperammonaemia [Recovered/Resolved]
  - Rhabdomyolysis [Recovering/Resolving]
  - Gait disturbance [Unknown]
  - Altered state of consciousness [Recovering/Resolving]
  - Seizure [Recovering/Resolving]
  - Polydipsia [Unknown]

NARRATIVE: CASE EVENT DATE: 20140511
